FAERS Safety Report 8970122 (Version 3)
Quarter: 2014Q1

REPORT INFORMATION
  Report Type: Spontaneous
  Country: US (occurrence: US)
  Receive Date: 20121217
  Receipt Date: 20140109
  Transmission Date: 20141002
  Serious: No
  Sender: FDA-Public Use
  Company Number: US-PFIZER INC-2012314179

PATIENT
  Age: 66 Year
  Sex: Male
  Weight: 74.83 kg

DRUGS (5)
  1. ZYVOX [Suspect]
     Indication: STAPHYLOCOCCAL INFECTION
     Dosage: 600 MG, 2X/DAY
     Route: 048
     Dates: start: 20121205, end: 20121211
  2. ZYVOX [Suspect]
     Indication: STAPHYLOCOCCAL INFECTION
     Dosage: 600 MG, 3X/DAY
  3. GABAPENTIN [Concomitant]
     Indication: HYPOTONIA
     Dosage: 300 MG, 4X/DAY
  4. FERROUS SULPHATE [Concomitant]
     Indication: IRON DEFICIENCY
     Dosage: 324 MG, 3X/DAY
  5. SEROQUEL [Concomitant]
     Indication: DEPRESSION
     Dosage: 100 MG, DAILY

REACTIONS (1)
  - Acne [Unknown]
